FAERS Safety Report 14444574 (Version 1)
Quarter: 2018Q1

REPORT INFORMATION
  Report Type: Spontaneous
  Country: US (occurrence: US)
  Receive Date: 20180125
  Receipt Date: 20180125
  Transmission Date: 20180509
  Serious: No
  Sender: FDA-Public Use
  Company Number: None

PATIENT
  Age: 61 Year
  Sex: Female

DRUGS (1)
  1. IMITREX [Suspect]
     Active Substance: SUMATRIPTAN SUCCINATE
     Indication: MIGRAINE
     Dates: start: 20030101, end: 20180102

REACTIONS (4)
  - Transient ischaemic attack [None]
  - Deafness [None]
  - Hypersensitivity [None]
  - Hypertension [None]

NARRATIVE: CASE EVENT DATE: 20030101
